FAERS Safety Report 5212571-6 (Version None)
Quarter: 2007Q1

REPORT INFORMATION
  Report Type: 
  Country: None (occurrence: None)
  Receive Date: 20070118
  Receipt Date: 20070110
  Transmission Date: 20070707
  Serious: Yes (Other)
  Sender: FDA-Public Use
  Company Number: BR-PFIZER INC-2006153046

PATIENT
  Sex: Female

DRUGS (5)
  1. FRONTAL [Suspect]
     Indication: INSOMNIA
     Route: 048
     Dates: start: 20061101, end: 20061201
  2. VENLAFAXINE HCL [Concomitant]
     Dosage: DAILY DOSE:250MG
  3. TRAZODONE HCL [Concomitant]
     Dosage: DAILY DOSE:50MG
     Route: 048
  4. RIVOTRIL [Concomitant]
     Dosage: DAILY DOSE:4MG
     Route: 048
  5. DIAZEPAM [Concomitant]
     Dosage: DAILY DOSE:10MG

REACTIONS (6)
  - DRUG INEFFECTIVE [None]
  - HEADACHE [None]
  - HYPERTENSION [None]
  - HYPOTENSION [None]
  - LIVER DISORDER [None]
  - MYALGIA [None]
